FAERS Safety Report 13814350 (Version 1)
Quarter: 2017Q3

REPORT INFORMATION
  Report Type: Spontaneous
  Country: US (occurrence: US)
  Receive Date: 20170728
  Receipt Date: 20170728
  Transmission Date: 20171127
  Serious: Yes (Disabling)
  Sender: FDA-Public Use
  Company Number: None

PATIENT
  Age: 63 Year
  Sex: Female
  Weight: 50.4 kg

DRUGS (5)
  1. PROLIA [Concomitant]
     Active Substance: DENOSUMAB
  2. METRONIDAZOLE. [Suspect]
     Active Substance: METRONIDAZOLE
     Indication: CLOSTRIDIUM DIFFICILE INFECTION
     Dosage: ?          QUANTITY:30 TABLET(S);?
     Route: 048
     Dates: start: 20170605, end: 20170611
  3. RALOXIFENE. [Concomitant]
     Active Substance: RALOXIFENE
  4. VITAMIN D [Concomitant]
     Active Substance: CHOLECALCIFEROL
  5. TRIAMTERENE-HCTZ [Concomitant]
     Active Substance: HYDROCHLOROTHIAZIDE\TRIAMTERENE

REACTIONS (6)
  - Disturbance in attention [None]
  - Fear [None]
  - Confusional state [None]
  - Dizziness [None]
  - Somnolence [None]
  - Loss of personal independence in daily activities [None]

NARRATIVE: CASE EVENT DATE: 20170609
